FAERS Safety Report 23236847 (Version 1)
Quarter: 2023Q4

REPORT INFORMATION
  Report Type: Spontaneous
  Country: US (occurrence: None)
  Receive Date: 20231127
  Receipt Date: 20231127
  Transmission Date: 20240110
  Serious: Yes (Hospitalization)
  Sender: FDA-Public Use
  Company Number: None

PATIENT
  Age: 59 Year
  Sex: Male
  Weight: 86.2 kg

DRUGS (5)
  1. PAXLOVID [Suspect]
     Active Substance: NIRMATRELVIR\RITONAVIR
     Indication: COVID-19
     Dates: start: 20231101, end: 20231105
  2. Hydrochlorothiazide 25 mg daily [Concomitant]
  3. Lorazepam 1 mg twice daily [Concomitant]
  4. losartan 50 mg twice daily [Concomitant]
  5. Metoprolol tartrate 50 mg twice daily [Concomitant]

REACTIONS (4)
  - Balance disorder [None]
  - Gait inability [None]
  - Hyponatraemia [None]
  - Hypercalcaemia [None]

NARRATIVE: CASE EVENT DATE: 20231126
